FAERS Safety Report 4424091-7 (Version None)
Quarter: 2004Q3

REPORT INFORMATION
  Report Type: 
  Country: None (occurrence: None)
  Receive Date: 20040809
  Receipt Date: 20040803
  Transmission Date: 20050211
  Serious: No
  Sender: FDA-Public Use
  Company Number: 2004UW16442

PATIENT
  Age: 47 Year
  Sex: Male
  Weight: 72.5755 kg

DRUGS (2)
  1. NEXIUM [Suspect]
     Indication: DYSPEPSIA
     Dosage: 40 MG QD PO
     Route: 048
     Dates: start: 20020801
  2. MONOCOR [Concomitant]

REACTIONS (3)
  - DIARRHOEA [None]
  - HYPERTENSION [None]
  - VISION BLURRED [None]
